FAERS Safety Report 6283908-4 (Version None)
Quarter: 2009Q3

REPORT INFORMATION
  Report Type: 
  Country: None (occurrence: None)
  Receive Date: 20090722
  Receipt Date: 20090722
  Transmission Date: 20100115
  Serious: Yes (Other)
  Sender: FDA-Public Use
  Company Number: None

PATIENT
  Age: 28 Year
  Sex: Female
  Weight: 52.1637 kg

DRUGS (1)
  1. CHANTIX [Suspect]
     Indication: SMOKING CESSATION THERAPY
     Dosage: PFIZER 1 OR 2X DAILY PO
     Route: 048
     Dates: start: 20090220, end: 20090418

REACTIONS (7)
  - AGITATION [None]
  - ANXIETY [None]
  - DEPRESSION [None]
  - IMPAIRED WORK ABILITY [None]
  - MOOD ALTERED [None]
  - SUICIDAL IDEATION [None]
  - WITHDRAWAL SYNDROME [None]
